FAERS Safety Report 21699510 (Version 1)
Quarter: 2022Q4

REPORT INFORMATION
  Report Type: Report from Study
  Country: US (occurrence: US)
  Receive Date: 20221208
  Receipt Date: 20221208
  Transmission Date: 20230113
  Serious: No
  Sender: FDA-Public Use
  Company Number: US-ABBVIE-4192346

PATIENT
  Age: 66 Year

DRUGS (2)
  1. HUMIRA [Suspect]
     Active Substance: ADALIMUMAB
     Indication: Psoriatic arthropathy
     Dosage: HUMIRA CF ?FORM STRENGTH: 40 MG?THE DISCONTINUATION DATE WAS 28 NOV 2022
     Route: 058
  2. HUMIRA [Suspect]
     Active Substance: ADALIMUMAB
     Dosage: HUMIRA CF ?FORM STRENGTH: 40 MG?DRUG RESTART DATE - 2022
     Route: 058

REACTIONS (1)
  - Illness [Unknown]

NARRATIVE: CASE EVENT DATE: 20220901
